FAERS Safety Report 7459870-5 (Version None)
Quarter: 2011Q2

REPORT INFORMATION
  Report Type: 
  Country: None (occurrence: None)
  Receive Date: 20110504
  Receipt Date: 20110504
  Transmission Date: 20111010
  Serious: Yes (Life-Threatening, Other)
  Sender: FDA-Public Use
  Company Number: None

PATIENT
  Age: 40 Year
  Sex: Female
  Weight: 77.1115 kg

DRUGS (1)
  1. CLONAZEPAM [Suspect]
     Indication: PANIC ATTACK
     Dosage: 1 1/2 BY MOUTH TWICE A DAY
     Route: 048
     Dates: start: 20081018, end: 20110502

REACTIONS (10)
  - EYE IRRITATION [None]
  - EYE PRURITUS [None]
  - MOBILITY DECREASED [None]
  - DIZZINESS [None]
  - ARTHROPATHY [None]
  - URINARY TRACT INFECTION [None]
  - LACRIMATION INCREASED [None]
  - TREMOR [None]
  - VISION BLURRED [None]
  - EYE PAIN [None]
